FAERS Safety Report 25995106 (Version 1)
Quarter: 2025Q4

REPORT INFORMATION
  Report Type: Spontaneous
  Country: CH (occurrence: CH)
  Receive Date: 20251104
  Receipt Date: 20251104
  Transmission Date: 20260118
  Serious: Yes (Other)
  Sender: MYLAN
  Company Number: CH-MYLANLABS-2025M1092311

PATIENT
  Age: 85 Year
  Sex: Female

DRUGS (2)
  1. TRAMADOL [Suspect]
     Active Substance: TRAMADOL
     Indication: Polyneuropathy chronic
     Dosage: 100 MILLIGRAM, QD
  2. TRAMADOL [Suspect]
     Active Substance: TRAMADOL
     Indication: Neuralgia

REACTIONS (2)
  - Drug ineffective for unapproved indication [Unknown]
  - Off label use [Unknown]
